FAERS Safety Report 4793893-X (Version None)
Quarter: 2005Q4

REPORT INFORMATION
  Report Type: 
  Country: None (occurrence: None)
  Receive Date: 20051006
  Receipt Date: 20051006
  Transmission Date: 20060501
  Serious: Yes (Death, Hospitalization)
  Sender: FDA-Public Use
  Company Number: None

PATIENT
  Sex: Female
  Weight: 92 kg

DRUGS (15)
  1. CYCLOPHOSPHAMIDE [Suspect]
     Indication: ACUTE LYMPHOCYTIC LEUKAEMIA
     Dosage: SEE IMAGE
     Route: 042
     Dates: start: 20050902
  2. ALLOPURINOL [Suspect]
     Dosage: SEE IMAGE
     Route: 048
  3. DAUNORUBICIN HCL [Suspect]
     Dosage: SEE IMAGE
     Route: 042
     Dates: start: 20050904, end: 20050904
  4. VINCRISTINE [Suspect]
     Dosage: SEE IMAGE
     Route: 042
     Dates: start: 20050916, end: 20050916
  5. DEXAMETHASONE [Suspect]
     Dosage: SEE IMAGE
     Route: 048
  6. L-ASPARAGINASE [Suspect]
     Dosage: SEE IMAGE
     Route: 058
     Dates: start: 20050916, end: 20050916
  7. G-CSF [Suspect]
     Dosage: SEE IMAGE
     Route: 058
  8. METHOTREXATE [Suspect]
     Dosage: SEE IMAGE
  9. CYCLOPHOSPHAMIDE [Suspect]
     Dosage: SEE IMAGE
     Route: 042
     Dates: start: 20050902
  10. CYTARABINE [Suspect]
     Dosage: SEE IMAGE
     Route: 042
  11. L-ASPARAGINASE [Suspect]
     Dosage: SEE IMAGE
     Route: 058
     Dates: start: 20050916, end: 20050916
  12. DEXAMETHASONE [Suspect]
     Dosage: SEE IMAGE
  13. G-CSF [Suspect]
     Dosage: SEE IMAGE
     Route: 058
  14. CORTRIMOXAZOLE DS [Suspect]
     Dosage: SEE IMAGE
     Route: 048
  15. HYDROCORTISONE [Suspect]
     Dosage: SEE IMAGE
     Route: 037

REACTIONS (12)
  - ABDOMINAL TENDERNESS [None]
  - BLOOD CREATININE INCREASED [None]
  - CONFUSIONAL STATE [None]
  - DEPRESSED LEVEL OF CONSCIOUSNESS [None]
  - HEPATIC STEATOSIS [None]
  - HYPONATRAEMIA [None]
  - HYPOTENSION [None]
  - LIVER FUNCTION TEST ABNORMAL [None]
  - MULTI-ORGAN FAILURE [None]
  - RESPIRATORY DISTRESS [None]
  - TACHYCARDIA [None]
  - TACHYPNOEA [None]
